FAERS Safety Report 4892472-3 (Version None)
Quarter: 2006Q1

REPORT INFORMATION
  Report Type: 
  Country: None (occurrence: None)
  Receive Date: 20060126
  Receipt Date: 20050825
  Transmission Date: 20060701
  Serious: No
  Sender: FDA-Public Use
  Company Number: US-BRISTOL-MYERS SQUIBB COMPANY-13090766

PATIENT
  Age: 24 Year
  Sex: Female
  Weight: 57 kg

DRUGS (3)
  1. CEFZIL [Suspect]
     Indication: EAR INFECTION
     Route: 048
     Dates: start: 20050808
  2. TEGRETOL-XR [Concomitant]
  3. L-ARGININE [Concomitant]

REACTIONS (3)
  - BALANCE DISORDER [None]
  - BLOOD POTASSIUM DECREASED [None]
  - INSOMNIA [None]
